FAERS Safety Report 18964393 (Version 1)
Quarter: 2021Q1

REPORT INFORMATION
  Report Type: Spontaneous
  Country: US (occurrence: US)
  Receive Date: 20210303
  Receipt Date: 20210303
  Transmission Date: 20210420
  Serious: No
  Sender: FDA-Public Use
  Company Number: US-AMNEAL PHARMACEUTICALS-2020-AMRX-03082

PATIENT
  Sex: Female

DRUGS (1)
  1. RYTARY [Suspect]
     Active Substance: CARBIDOPA\LEVODOPA
     Indication: PRODUCT USED FOR UNKNOWN INDICATION
     Dosage: 3 CAPSULES, 4X/DAY
     Route: 048

REACTIONS (5)
  - Prescribed overdose [Unknown]
  - Chills [Unknown]
  - Chest discomfort [Unknown]
  - Malaise [Unknown]
  - Musculoskeletal stiffness [Unknown]
